FAERS Safety Report 13707944 (Version 1)
Quarter: 2017Q2

REPORT INFORMATION
  Report Type: Spontaneous
  Country: JP (occurrence: JP)
  Receive Date: 20170630
  Receipt Date: 20170630
  Transmission Date: 20170830
  Serious: Yes (Other)
  Sender: FDA-Public Use
  Company Number: JP-ELI_LILLY_AND_COMPANY-JP201706012428

PATIENT
  Age: 63 Year
  Sex: Female

DRUGS (2)
  1. PACLITAXEL. [Suspect]
     Active Substance: PACLITAXEL
     Indication: TONGUE CANCER RECURRENT
     Dosage: 60 MG/M2, WEEKLY (1/W)
     Route: 041
     Dates: start: 20170614
  2. ERBITUX [Suspect]
     Active Substance: CETUXIMAB
     Indication: TONGUE CANCER RECURRENT
     Dosage: 400 MG/M2, WEEKLY (1/W)
     Route: 041
     Dates: start: 20170614

REACTIONS (2)
  - Lymphocyte count decreased [Unknown]
  - Off label use [Unknown]

NARRATIVE: CASE EVENT DATE: 20170615
